FAERS Safety Report 14706185 (Version 1)
Quarter: 2018Q2

REPORT INFORMATION
  Report Type: Spontaneous
  Country: US (occurrence: US)
  Receive Date: 20180402
  Receipt Date: 20180402
  Transmission Date: 20180711
  Serious: No
  Sender: FDA-Public Use
  Company Number: US-PIERREL PHARMA S.P.A.-2017PIR00018

PATIENT
  Sex: Female

DRUGS (2)
  1. ARTICAINE 4% WITH ADRENALINE 1:100,000 [Suspect]
     Active Substance: ARTICAINE\EPINEPHRINE
     Indication: LOCAL ANAESTHESIA
     Dosage: UNK
     Route: 004
     Dates: start: 2017, end: 2017
  2. ARTICAINE 4% WITH ADRENALINE 1:200,000 [Suspect]
     Active Substance: ARTICAINE\EPINEPHRINE
     Indication: LOCAL ANAESTHESIA
     Dosage: UNK
     Route: 004
     Dates: start: 2017, end: 2017

REACTIONS (1)
  - Hypersensitivity [Recovered/Resolved]

NARRATIVE: CASE EVENT DATE: 2017
